FAERS Safety Report 16011492 (Version 1)
Quarter: 2019Q1

REPORT INFORMATION
  Report Type: Spontaneous
  Country: PK (occurrence: PK)
  Receive Date: 20190227
  Receipt Date: 20190227
  Transmission Date: 20190418
  Serious: Yes (Death, Other)
  Sender: FDA-Public Use
  Company Number: PK-ASTELLAS-2019US007896

PATIENT
  Age: 23 Year
  Sex: Male

DRUGS (1)
  1. AMPHOTERICIN B, LIPOSOME [Suspect]
     Active Substance: AMPHOTERICIN B
     Indication: MUCORMYCOSIS
     Dosage: UNK, UNKNOWN FREQ.
     Route: 042

REACTIONS (1)
  - Drug ineffective [Fatal]
